FAERS Safety Report 9515564 (Version 1)
Quarter: 2013Q3

REPORT INFORMATION
  Report Type: Spontaneous
  Country: US (occurrence: US)
  Receive Date: 20130911
  Receipt Date: 20130911
  Transmission Date: 20140515
  Serious: No
  Sender: FDA-Public Use
  Company Number: US-BAYER-2013-109416

PATIENT
  Age: 27 Year
  Sex: Female
  Weight: 77.1 kg

DRUGS (4)
  1. ALEVE TABLET [Suspect]
     Indication: ARTHRITIS
     Dosage: 1-2, DF, QD
     Route: 048
     Dates: start: 2009
  2. LEVOTHYROXINE [Concomitant]
     Dosage: UNK
  3. NATUREMADE ESSENTIAL BALANCE [Concomitant]
     Dosage: UNK
  4. FISH OIL [Concomitant]
     Dosage: UNK

REACTIONS (2)
  - Drug ineffective [None]
  - Incorrect drug administration duration [None]
